FAERS Safety Report 14299340 (Version 2)
Quarter: 2018Q1

REPORT INFORMATION
  Report Type: Report from Study
  Country: None (occurrence: US)
  Receive Date: 20171219
  Receipt Date: 20180111
  Transmission Date: 20180509
  Serious: Yes (Hospitalization, Other)
  Sender: FDA-Public Use
  Company Number: US-ABBVIE-17K-163-2155191-00

PATIENT
  Age: 57 Year
  Sex: Female

DRUGS (3)
  1. HUMIRA [Suspect]
     Active Substance: ADALIMUMAB
     Indication: CROHN^S DISEASE
     Dosage: LOADING DOSE DAY 1
     Route: 058
     Dates: start: 20171103, end: 20171103
  2. HUMIRA [Suspect]
     Active Substance: ADALIMUMAB
     Dosage: LOADING DOSE DAY 15
     Route: 058
     Dates: start: 20171117, end: 20171117
  3. HUMIRA [Suspect]
     Active Substance: ADALIMUMAB
     Dosage: DAY 29
     Route: 058
     Dates: start: 20171201

REACTIONS (19)
  - Asthenia [Unknown]
  - Malaise [Not Recovered/Not Resolved]
  - Abdominal pain [Unknown]
  - Malnutrition [Unknown]
  - Hyperhidrosis [Unknown]
  - Dyspnoea [Unknown]
  - Diarrhoea [Unknown]
  - Diarrhoea [Recovering/Resolving]
  - Dehydration [Unknown]
  - Decreased appetite [Not Recovered/Not Resolved]
  - Anxiety [Unknown]
  - Transfusion [Unknown]
  - Insomnia [Unknown]
  - Hyperhidrosis [Unknown]
  - Depression [Unknown]
  - Fatigue [Not Recovered/Not Resolved]
  - Tremor [Unknown]
  - Drug ineffective [Unknown]
  - Decreased appetite [Unknown]

NARRATIVE: CASE EVENT DATE: 2017
